FAERS Safety Report 10478024 (Version 1)
Quarter: 2014Q3

REPORT INFORMATION
  Report Type: Spontaneous
  Country: US (occurrence: None)
  Receive Date: 20140924
  Receipt Date: 20140924
  Transmission Date: 20150326
  Serious: Yes (Hospitalization, Other)
  Sender: FDA-Public Use
  Company Number: 2010S1000562

PATIENT
  Age: 57 Year
  Sex: Female

DRUGS (11)
  1. LISINOPRIL. [Concomitant]
     Active Substance: LISINOPRIL
  2. PHOSPHO-SODA [Suspect]
     Active Substance: SODIUM PHOSPHATE, DIBASIC\SODIUM PHOSPHATE, MONOBASIC
     Indication: COLONOSCOPY
     Route: 048
     Dates: start: 20080310
  3. KLONOPIN [Concomitant]
     Active Substance: CLONAZEPAM
  4. VYTORIN (SIMVASTATIN, EZETIMIBE) [Concomitant]
  5. ZIAC (HYDROCHOLOROTHIAZIDE, BISOPROLOL FUMARATE) [Concomitant]
  6. GLUCOVANCE (METFORMIN HYDROCHLORIDE, GLIBENCLAMIDE) [Concomitant]
  7. ADVIL [Concomitant]
     Active Substance: IBUPROFEN
  8. ECOTRIN [Concomitant]
     Active Substance: ASPIRIN
  9. SULAR (NISOLDIPINE) [Concomitant]
  10. PROZAC [Concomitant]
     Active Substance: FLUOXETINE HYDROCHLORIDE
  11. AVALIDE (HYDROCHLOROTHIAZIDE, IRBESARTAN) [Concomitant]

REACTIONS (29)
  - Dehydration [None]
  - Microalbuminuria [None]
  - Kidney fibrosis [None]
  - Hyperglycaemia [None]
  - Nephrogenic anaemia [None]
  - Renal ischaemia [None]
  - Hypertensive nephropathy [None]
  - Middle ear effusion [None]
  - Renal failure chronic [None]
  - Acute prerenal failure [None]
  - Renal tubular disorder [None]
  - Hypovolaemia [None]
  - Diabetic nephropathy [None]
  - Metabolic acidosis [None]
  - Deafness [None]
  - Tympanic membrane perforation [None]
  - Hydronephrosis [None]
  - Ovarian cyst [None]
  - Hyperphosphataemia [None]
  - Post procedural complication [None]
  - Oedema [None]
  - Nephrosclerosis [None]
  - Gallbladder disorder [None]
  - Renal tubular necrosis [None]
  - Otitis media [None]
  - Echocardiogram abnormal [None]
  - Ill-defined disorder [None]
  - Perirenal haematoma [None]
  - Hyperparathyroidism [None]

NARRATIVE: CASE EVENT DATE: 200810
